FAERS Safety Report 8145793-5 (Version None)
Quarter: 2012Q1

REPORT INFORMATION
  Report Type: 
  Country: None (occurrence: None)
  Receive Date: 20120217
  Receipt Date: 20120209
  Transmission Date: 20120608
  Serious: Yes (Other)
  Sender: FDA-Public Use
  Company Number: US-JNJFOC-20120205296

PATIENT
  Sex: Female
  Weight: 58.97 kg

DRUGS (1)
  1. SIMPONI [Suspect]
     Indication: ANKYLOSING SPONDYLITIS
     Route: 058
     Dates: start: 20091201, end: 20100601

REACTIONS (7)
  - ABDOMINAL PAIN [None]
  - SYSTEMIC LUPUS ERYTHEMATOSUS [None]
  - NAUSEA [None]
  - VOMITING [None]
  - DRUG INEFFECTIVE [None]
  - DIZZINESS [None]
  - ANAEMIA [None]
